FAERS Safety Report 22529826 (Version 1)
Quarter: 2023Q2

REPORT INFORMATION
  Report Type: Spontaneous
  Country: US (occurrence: None)
  Receive Date: 20230605
  Receipt Date: 20230605
  Transmission Date: 20230722
  Serious: No
  Sender: FDA-Public Use
  Company Number: None

PATIENT
  Age: 72 Year
  Sex: Male

DRUGS (1)
  1. TASIMELTEON [Suspect]
     Active Substance: TASIMELTEON
     Dosage: FREQUENCY : DAILY;?
     Route: 048

REACTIONS (2)
  - Streptococcal infection [None]
  - Aortic valve disease [None]

NARRATIVE: CASE EVENT DATE: 20230605
